FAERS Safety Report 5328103-8 (Version None)
Quarter: 2007Q2

REPORT INFORMATION
  Report Type: 
  Country: None (occurrence: None)
  Receive Date: 20070514
  Receipt Date: 20070502
  Transmission Date: 20071010
  Serious: Yes (Hospitalization)
  Sender: FDA-Public Use
  Company Number: MEDI-0005765

PATIENT
  Sex: Male

DRUGS (1)
  1. ETHYOL [Suspect]
     Dosage: SUBCUTANEOUS
     Route: 058

REACTIONS (1)
  - RASH [None]
